FAERS Safety Report 7247485-3 (Version None)
Quarter: 2011Q1

REPORT INFORMATION
  Report Type: 
  Country: None (occurrence: None)
  Receive Date: 20110127
  Receipt Date: 20110118
  Transmission Date: 20110831
  Serious: Yes (Death)
  Sender: FDA-Public Use
  Company Number: JP-AMGEN-JPNCT2010011973

PATIENT
  Age: 54 Year
  Sex: Female
  Weight: 43 kg

DRUGS (12)
  1. ALESION [Concomitant]
     Dosage: UNK
     Route: 048
  2. OXALIPLATIN [Concomitant]
     Indication: COLORECTAL CANCER
     Route: 041
     Dates: start: 20101025
  3. MINOMYCIN [Concomitant]
     Dosage: UNK
     Route: 048
  4. OXALIPLATIN [Concomitant]
     Route: 041
     Dates: start: 20101025, end: 20101122
  5. CALCIUM LEVOFOLINATE [Concomitant]
     Indication: COLORECTAL CANCER
     Route: 041
     Dates: start: 20101025
  6. CALCIUM LEVOFOLINATE [Concomitant]
     Route: 041
     Dates: start: 20101025, end: 20101122
  7. UREPEARL [Concomitant]
     Dosage: UNK
     Route: 062
  8. FLUOROURACIL [Concomitant]
     Indication: COLORECTAL CANCER
     Route: 041
     Dates: start: 20101025
  9. KINDAVATE [Concomitant]
     Dosage: UNK
     Route: 062
  10. PANITUMUMAB [Suspect]
     Indication: COLORECTAL CANCER
     Dosage: 6 MG/KG, Q2WK
     Route: 041
     Dates: start: 20100830, end: 20101122
  11. FLUOROURACIL [Concomitant]
     Route: 041
     Dates: start: 20101025, end: 20101122
  12. ALOXI [Concomitant]
     Dosage: UNK
     Route: 042

REACTIONS (4)
  - COLORECTAL CANCER [None]
  - HYPOMAGNESAEMIA [None]
  - DERMATITIS ACNEIFORM [None]
  - HYPOCALCAEMIA [None]
